FAERS Safety Report 21254233 (Version 5)
Quarter: 2023Q1

REPORT INFORMATION
  Report Type: Report from Study
  Country: CA (occurrence: CA)
  Receive Date: 20220825
  Receipt Date: 20230323
  Transmission Date: 20230418
  Serious: Yes (Hospitalization, Other)
  Sender: FDA-Public Use
  Company Number: CA-OTSUKA-2022_023733

PATIENT
  Age: 71 Year
  Sex: Female

DRUGS (3)
  1. CEDAZURIDINE\DECITABINE [Suspect]
     Active Substance: CEDAZURIDINE\DECITABINE
     Indication: Chronic myelomonocytic leukaemia
     Dosage: 1 DF (35-100 MG), QD, 5 PILLS PER 28 DAY CYCLE
     Route: 048
     Dates: start: 20220411
  2. TASIGNA [Concomitant]
     Active Substance: NILOTINIB
     Indication: Product used for unknown indication
     Dosage: UNK
     Route: 065
  3. HYDROMORPHONE [Concomitant]
     Active Substance: HYDROMORPHONE
     Indication: Back pain
     Dosage: UNK
     Route: 065

REACTIONS (17)
  - Hepatic pain [Unknown]
  - Nephrolithiasis [Unknown]
  - Hepatitis [Not Recovered/Not Resolved]
  - Leukaemia [Not Recovered/Not Resolved]
  - Chronic kidney disease [Unknown]
  - Back pain [Unknown]
  - Pneumonia [Unknown]
  - Platelet count decreased [Unknown]
  - Immune system disorder [Unknown]
  - Ear pain [Unknown]
  - Full blood count abnormal [Unknown]
  - Nasopharyngitis [Unknown]
  - Pain in extremity [Unknown]
  - Peripheral swelling [Unknown]
  - COVID-19 [Unknown]
  - Influenza [Unknown]
  - Cough [Unknown]

NARRATIVE: CASE EVENT DATE: 20221001
